FAERS Safety Report 9829274 (Version 2)
Quarter: 2014Q1

REPORT INFORMATION
  Report Type: Report from Study
  Country: DE (occurrence: DE)
  Receive Date: 20140120
  Receipt Date: 20140121
  Transmission Date: 20141002
  Serious: Yes (Hospitalization, Other)
  Sender: FDA-Public Use
  Company Number: DE-ROCHE-1335375

PATIENT
  Sex: Female

DRUGS (2)
  1. RANIBIZUMAB [Suspect]
     Indication: AGE-RELATED MACULAR DEGENERATION
     Dosage: DPSE:10 MG/ML
     Route: 050
     Dates: start: 20120717, end: 20130723
  2. XALATAN [Concomitant]
     Route: 065
     Dates: start: 20111108

REACTIONS (2)
  - Gastrointestinal carcinoma [Unknown]
  - Visual acuity reduced [Unknown]
